FAERS Safety Report 24824726 (Version 1)
Quarter: 2025Q1

REPORT INFORMATION
  Report Type: Spontaneous
  Country: CN (occurrence: CN)
  Receive Date: 20250109
  Receipt Date: 20250109
  Transmission Date: 20250408
  Serious: Yes (Life-Threatening, Hospitalization, Other)
  Sender: NAARI PHARMA
  Company Number: CN-NAARI PTE LIMITED-2025NP000002

PATIENT
  Age: 44 Year
  Sex: Female

DRUGS (1)
  1. NORETHINDRONE [Suspect]
     Active Substance: NORETHINDRONE
     Indication: Endometrial hyperplasia with cellular atypia
     Route: 065

REACTIONS (3)
  - Pulmonary embolism [Recovered/Resolved]
  - Cardiac arrest [Recovered/Resolved]
  - Off label use [Unknown]
